FAERS Safety Report 18818296 (Version 1)
Quarter: 2021Q1

REPORT INFORMATION
  Report Type: Spontaneous
  Country: US (occurrence: US)
  Receive Date: 20210202
  Receipt Date: 20210202
  Transmission Date: 20210419
  Serious: No
  Sender: FDA-Public Use
  Company Number: US-AMGEN-USASP2021016096

PATIENT
  Sex: Female

DRUGS (15)
  1. ATORVASTATIN [Concomitant]
     Active Substance: ATORVASTATIN
  2. OTEZLA [Suspect]
     Active Substance: APREMILAST
     Indication: PSORIATIC ARTHROPATHY
     Dosage: 30 MILLIGRAM, BID
     Route: 048
     Dates: start: 20191213
  3. CLOBETASOL [Concomitant]
     Active Substance: CLOBETASOL
  4. ESTRADIOL. [Concomitant]
     Active Substance: ESTRADIOL
  5. BUPROPION [BUPROPION HYDROCHLORIDE] [Concomitant]
     Active Substance: BUPROPION HYDROCHLORIDE
  6. TIZANIDINE. [Concomitant]
     Active Substance: TIZANIDINE
  7. XTAMPZA ER [Concomitant]
     Active Substance: OXYCODONE
  8. CLOPIDOGREL [Concomitant]
     Active Substance: CLOPIDOGREL BISULFATE
  9. METHOCARBAMOL. [Concomitant]
     Active Substance: METHOCARBAMOL
  10. METOPROLOL SUCCINATE. [Concomitant]
     Active Substance: METOPROLOL SUCCINATE
  11. TRELEGY ELLIPTA [Concomitant]
     Active Substance: FLUTICASONE FUROATE\UMECLIDINIUM BROMIDE\VILANTEROL TRIFENATATE
  12. VALACYCLOVIR [Concomitant]
     Active Substance: VALACYCLOVIR HYDROCHLORIDE
  13. AMLODIPINE [Concomitant]
     Active Substance: AMLODIPINE BESYLATE
  14. DORZOLAMIDE/TIMOLOL [DORZOLAMIDE;TIMOLOL MALEATE] [Concomitant]
     Active Substance: DORZOLAMIDE HYDROCHLORIDE\TIMOLOL MALEATE
  15. FUROSEMIDE. [Concomitant]
     Active Substance: FUROSEMIDE

REACTIONS (1)
  - Nausea [Not Recovered/Not Resolved]
